FAERS Safety Report 7062387-3 (Version None)
Quarter: 2010Q4

REPORT INFORMATION
  Report Type: 
  Country: None (occurrence: None)
  Receive Date: 20101026
  Receipt Date: 20101012
  Transmission Date: 20110411
  Serious: Yes (Hospitalization)
  Sender: FDA-Public Use
  Company Number: US-CELGENEUS-163-50794-10091291

PATIENT
  Sex: Male
  Weight: 65 kg

DRUGS (14)
  1. VIDAZA [Suspect]
     Indication: LARYNGEAL CANCER
     Route: 058
     Dates: start: 20100208, end: 20100910
  2. VIDAZA [Suspect]
     Route: 058
     Dates: start: 20100920
  3. TARCEVA [Suspect]
     Indication: LARYNGEAL CANCER
     Route: 048
     Dates: start: 20100208, end: 20100914
  4. TARCEVA [Suspect]
     Route: 048
     Dates: start: 20100920
  5. COREG [Concomitant]
     Indication: PRODUCT USED FOR UNKNOWN INDICATION
     Route: 065
     Dates: start: 20060801
  6. LISINOPRIL [Concomitant]
     Indication: PRODUCT USED FOR UNKNOWN INDICATION
     Route: 065
     Dates: start: 20060801
  7. DIGOXIN [Concomitant]
     Indication: PRODUCT USED FOR UNKNOWN INDICATION
     Route: 065
     Dates: start: 20060801
  8. SPIRONOLACTONE [Concomitant]
     Indication: PRODUCT USED FOR UNKNOWN INDICATION
     Route: 065
     Dates: start: 20070501
  9. ROXICET [Concomitant]
     Indication: PRODUCT USED FOR UNKNOWN INDICATION
     Route: 065
     Dates: start: 20091101
  10. AZELASTINE HCL [Concomitant]
     Indication: PRODUCT USED FOR UNKNOWN INDICATION
     Route: 065
     Dates: start: 20080901
  11. VALIUM [Concomitant]
     Indication: PRODUCT USED FOR UNKNOWN INDICATION
     Route: 065
     Dates: start: 20100701
  12. FENTANYL CITRATE [Concomitant]
     Indication: PRODUCT USED FOR UNKNOWN INDICATION
     Route: 065
     Dates: start: 20100801
  13. ONDANSETRON [Concomitant]
     Indication: PRODUCT USED FOR UNKNOWN INDICATION
     Route: 065
     Dates: start: 20091101
  14. PROCHLORPERAZINE [Concomitant]
     Indication: PRODUCT USED FOR UNKNOWN INDICATION
     Route: 065
     Dates: start: 20091101

REACTIONS (4)
  - CONFUSIONAL STATE [None]
  - NEUTROPENIA [None]
  - PRODUCTIVE COUGH [None]
  - PYREXIA [None]
